FAERS Safety Report 8302526-7 (Version None)
Quarter: 2012Q2

REPORT INFORMATION
  Report Type: 
  Country: None (occurrence: None)
  Receive Date: 20120412
  Receipt Date: 20120328
  Transmission Date: 20120825
  Serious: Yes (Hospitalization)
  Sender: FDA-Public Use
  Company Number: CA-145292

PATIENT
  Sex: Female

DRUGS (1)
  1. WINRHO SDF [Suspect]
     Indication: PROPHYLAXIS AGAINST RH ISOIMMUNISATION
     Dosage: (300 UG TOTAL INTRAVENOUS (NOT OTHERWISE SPECIFIED)
     Route: 042
     Dates: start: 20120323, end: 20120323

REACTIONS (6)
  - CHEST PAIN [None]
  - DYSPNOEA [None]
  - MATERNAL EXPOSURE DURING PREGNANCY [None]
  - ANXIETY [None]
  - ANAPHYLACTIC REACTION [None]
  - CARDIOMEGALY [None]
